FAERS Safety Report 8230293-4 (Version None)
Quarter: 2012Q1

REPORT INFORMATION
  Report Type: 
  Country: None (occurrence: None)
  Receive Date: 20120320
  Receipt Date: 20120305
  Transmission Date: 20120608
  Serious: Yes (Other)
  Sender: FDA-Public Use
  Company Number: JPI-P-020166

PATIENT
  Age: 44 Year
  Sex: Female
  Weight: 56.6996 kg

DRUGS (2)
  1. XYREM [Suspect]
     Indication: NARCOLEPSY
     Dosage: (UNKNOWN), ORAL 7.5 GM (3.75 GM, 2 IN 1 D), ORAL
     Route: 048
     Dates: start: 20051101
  2. PAROXETINE HYDROCHLORIDE (500 MILLIGRAM/MILLILITERS, SOLUTION) [Concomitant]

REACTIONS (10)
  - ANXIETY [None]
  - BREAST CANCER FEMALE [None]
  - CHILLS [None]
  - NASOPHARYNGITIS [None]
  - PYREXIA [None]
  - UNEVALUABLE EVENT [None]
  - DRY SKIN [None]
  - DRY MOUTH [None]
  - PAIN [None]
  - ACNE [None]
